FAERS Safety Report 4470127-7 (Version None)
Quarter: 2004Q3

REPORT INFORMATION
  Report Type: 
  Country: None (occurrence: None)
  Receive Date: 20040910
  Receipt Date: 20040715
  Transmission Date: 20050211
  Serious: No
  Sender: FDA-Public Use
  Company Number: 2004224301US

PATIENT
  Sex: Male

DRUGS (6)
  1. BEXTRA [Suspect]
     Indication: EXOSTOSIS
     Dosage: 10 MG, QD, ORAL
     Route: 048
     Dates: start: 20040101
  2. LISINOPRIL [Concomitant]
  3. WELLBUTRIN [Concomitant]
  4. BUSPIRONE [Concomitant]
  5. NIASPAN [Concomitant]
  6. MULTIVITAMIN [Concomitant]

REACTIONS (2)
  - ERECTILE DYSFUNCTION [None]
  - LETHARGY [None]
